FAERS Safety Report 4680314-0 (Version None)
Quarter: 2005Q2

REPORT INFORMATION
  Report Type: 
  Country: None (occurrence: None)
  Receive Date: 20050602
  Receipt Date: 20050321
  Transmission Date: 20051028
  Serious: Yes (Disabling)
  Sender: FDA-Public Use
  Company Number: IE-ABBOTT-05P-229-0295043-00

PATIENT
  Sex: Male
  Weight: 82.5 kg

DRUGS (5)
  1. KLACID [Suspect]
     Indication: DRUG USE FOR UNKNOWN INDICATION
  2. ATORVASTATIN CALCIUM [Concomitant]
     Indication: BLOOD CHOLESTEROL INCREASED
     Route: 048
  3. AMLODIPINE BESYLATE [Concomitant]
     Indication: BLOOD PRESSURE INCREASED
     Route: 048
  4. SOTACOL [Concomitant]
     Indication: BLOOD PRESSURE INCREASED
     Route: 048
  5. RAMIPRIL [Concomitant]
     Indication: BLOOD PRESSURE INCREASED
     Route: 048

REACTIONS (3)
  - ANOSMIA [None]
  - RHINITIS [None]
  - SINUSITIS [None]
